FAERS Safety Report 4456824-8 (Version None)
Quarter: 2004Q3

REPORT INFORMATION
  Report Type: 
  Country: None (occurrence: None)
  Receive Date: 20040921
  Receipt Date: 20040907
  Transmission Date: 20050211
  Serious: Yes (Other)
  Sender: FDA-Public Use
  Company Number: 2004-05-0040

PATIENT
  Age: 44 Year
  Sex: Male

DRUGS (2)
  1. CLARITIN [Suspect]
     Indication: RHINITIS SEASONAL
     Dosage: 10 MG BID ORAL
     Route: 048
     Dates: start: 20040430, end: 20040502
  2. ACETAMINOPHEN [Concomitant]

REACTIONS (2)
  - FACIAL PALSY [None]
  - HYPOAESTHESIA [None]
